FAERS Safety Report 6507261-3 (Version None)
Quarter: 2009Q4

REPORT INFORMATION
  Report Type: 
  Country: None (occurrence: None)
  Receive Date: 20091221
  Receipt Date: 20091215
  Transmission Date: 20100525
  Serious: Yes (Death)
  Sender: FDA-Public Use
  Company Number: PHEH2009US17105

PATIENT
  Sex: Female

DRUGS (1)
  1. EXJADE [Suspect]
     Dosage: 1750 MG, DAILY
     Route: 048

REACTIONS (2)
  - LARGE INTESTINE PERFORATION [None]
  - NEUTROPENIA [None]
